FAERS Safety Report 5362648-X (Version None)
Quarter: 2007Q2

REPORT INFORMATION
  Report Type: 
  Country: None (occurrence: None)
  Receive Date: 20070614
  Receipt Date: 20070601
  Transmission Date: 20071010
  Serious: Yes (Disabling)
  Sender: FDA-Public Use
  Company Number: 2005-130481-NL

PATIENT
  Age: 3 Year
  Sex: Male

DRUGS (12)
  1. PANCURONIUM BROMIDE [Suspect]
     Indication: MECHANICAL VENTILATION
     Dosage: 4.8 MG QD, INTRAVENOUS DRIP
     Route: 041
     Dates: start: 19981002, end: 19981011
  2. CEFMETAZOLE SODIUM [Concomitant]
  3. ULINASTATIN [Concomitant]
  4. FAMOTIDINE [Concomitant]
  5. DOBUTAMINE HYDROCHLORIDE [Concomitant]
  6. DOPAMINE HCL [Concomitant]
  7. FENTANYL CITRATE [Concomitant]
  8. DEXAMETHASONE 0.5MG TAB [Concomitant]
  9. SODIUM BICARBONATE [Concomitant]
  10. CALCIUM GLUCONATE [Concomitant]
  11. FUROXEMIDE [Concomitant]
  12. NITRIC OXIDE [Concomitant]

REACTIONS (4)
  - DEAFNESS NEUROSENSORY [None]
  - HEARING AID USER [None]
  - RENAL FAILURE ACUTE [None]
  - SPEECH DISORDER DEVELOPMENTAL [None]
